FAERS Safety Report 25873544 (Version 1)
Quarter: 2025Q4

REPORT INFORMATION
  Report Type: Spontaneous
  Country: EU (occurrence: EU)
  Receive Date: 20251002
  Receipt Date: 20251002
  Transmission Date: 20260118
  Serious: Yes (Hospitalization)
  Sender: MYLAN
  Company Number: None

PATIENT
  Age: 18 Year
  Sex: Male

DRUGS (12)
  1. PREGABALIN [Suspect]
     Active Substance: PREGABALIN
     Indication: Product used for unknown indication
     Dosage: UNK
     Dates: start: 20250221, end: 20250221
  2. PREGABALIN [Suspect]
     Active Substance: PREGABALIN
     Dosage: UNK
     Route: 048
     Dates: start: 20250221, end: 20250221
  3. PREGABALIN [Suspect]
     Active Substance: PREGABALIN
     Dosage: UNK
     Route: 048
     Dates: start: 20250221, end: 20250221
  4. PREGABALIN [Suspect]
     Active Substance: PREGABALIN
     Dosage: UNK
     Dates: start: 20250221, end: 20250221
  5. COCAINE [Suspect]
     Active Substance: COCAINE
     Indication: Product used for unknown indication
     Dosage: UNK
     Dates: start: 20250221, end: 20250221
  6. COCAINE [Suspect]
     Active Substance: COCAINE
     Dosage: UNK
     Route: 055
     Dates: start: 20250221, end: 20250221
  7. COCAINE [Suspect]
     Active Substance: COCAINE
     Dosage: UNK
     Route: 055
     Dates: start: 20250221, end: 20250221
  8. COCAINE [Suspect]
     Active Substance: COCAINE
     Dosage: UNK
     Dates: start: 20250221, end: 20250221
  9. CANNABIS SATIVA SUBSP. INDICA TOP [Suspect]
     Active Substance: CANNABIS SATIVA SUBSP. INDICA TOP
     Indication: Product used for unknown indication
     Dosage: UNK
     Dates: start: 20250221, end: 20250221
  10. CANNABIS SATIVA SUBSP. INDICA TOP [Suspect]
     Active Substance: CANNABIS SATIVA SUBSP. INDICA TOP
     Dosage: UNK
     Route: 055
     Dates: start: 20250221, end: 20250221
  11. CANNABIS SATIVA SUBSP. INDICA TOP [Suspect]
     Active Substance: CANNABIS SATIVA SUBSP. INDICA TOP
     Dosage: UNK
     Route: 055
     Dates: start: 20250221, end: 20250221
  12. CANNABIS SATIVA SUBSP. INDICA TOP [Suspect]
     Active Substance: CANNABIS SATIVA SUBSP. INDICA TOP
     Dosage: UNK
     Dates: start: 20250221, end: 20250221

REACTIONS (3)
  - Altered state of consciousness [Recovered/Resolved]
  - Drug use disorder [Recovered/Resolved]
  - Substance use disorder [Recovered/Resolved]

NARRATIVE: CASE EVENT DATE: 20250221
